FAERS Safety Report 8626722 (Version 3)
Quarter: 2012Q4

REPORT INFORMATION
  Report Type: Spontaneous
  Country: GB (occurrence: None)
  Receive Date: 20120606
  Receipt Date: 20121113
  Transmission Date: 20130627
  Serious: Yes (Death, Other)
  Sender: FDA-Public Use
  Company Number: AUR-APL-2012-02415

PATIENT
  Age: 49 Year
  Sex: Male

DRUGS (5)
  1. CITALOPRAM HYDROBROMIDE [Suspect]
     Indication: DEPRESSED MOOD
     Dosage: (20 MG),ORAL
     Route: 048
     Dates: start: 20101001, end: 20101018
  2. DULOXETINE HYDROCHLORIDE [Suspect]
     Indication: AGITATED DEPRESSION
     Dosage: (60 MG),ORAL
     Route: 048
     Dates: start: 20101019, end: 20101229
  3. DIAZEPAM [Concomitant]
  4. OLANZAPINE [Concomitant]
  5. ZOPICLONE (ZOPICLONE) [Concomitant]

REACTIONS (1)
  - Completed suicide [None]
